FAERS Safety Report 11851834 (Version 2)
Quarter: 2016Q3

REPORT INFORMATION
  Report Type: Spontaneous
  Country: UM (occurrence: US)
  Receive Date: 20151218
  Receipt Date: 20160719
  Transmission Date: 20161109
  Serious: Yes (Death)
  Sender: FDA-Public Use
  Company Number: US-TAIHO ONCOLOGY INC-EU-2015-00339

PATIENT
  Age: 59 Year
  Sex: Male
  Weight: 57.2 kg

DRUGS (3)
  1. TRIXAICIN [Concomitant]
     Active Substance: CAPSICUM OLEORESIN
     Dosage: NI
  2. DIFLUCAN [Concomitant]
     Active Substance: FLUCONAZOLE
     Dosage: NI
  3. LONSURF [Suspect]
     Active Substance: TIPIRACIL HYDROCHLORIDE\TRIFLURIDINE
     Indication: RECTAL CANCER
     Dosage: CYCLE 1, DOSAGE AND FREQUENCY UNKNOWN
     Route: 048
     Dates: start: 20151017, end: 20151130

REACTIONS (1)
  - Disease progression [Fatal]

NARRATIVE: CASE EVENT DATE: 20151202
